FAERS Safety Report 9913564 (Version 1)
Quarter: 2014Q1

REPORT INFORMATION
  Report Type: Spontaneous
  Country: US (occurrence: None)
  Receive Date: 20140218
  Receipt Date: 20140218
  Transmission Date: 20141002
  Serious: Yes (Hospitalization, Other)
  Sender: FDA-Public Use
  Company Number: 2013-001200

PATIENT
  Age: 75 Year
  Sex: Female
  Weight: 95.2 kg

DRUGS (28)
  1. ACTONEL [Suspect]
     Route: 048
     Dates: start: 20091006, end: 201105
  2. ACTONEL [Suspect]
     Route: 048
     Dates: start: 20091006, end: 201105
  3. ACTONEL [Suspect]
     Route: 048
     Dates: start: 20061227, end: 200910
  4. ACTONEL [Suspect]
     Route: 048
     Dates: start: 20061227, end: 200910
  5. ACTONEL [Suspect]
     Route: 048
     Dates: start: 20061227, end: 200910
  6. NEURONTIN (GABAPENTIN) [Concomitant]
  7. TRAMADOL (TRAMADOL) [Concomitant]
  8. DURAGESIC /00174601/ (FENTANYL) [Concomitant]
  9. DOC-Q-LACE (DOCUSATE SODIUM) [Concomitant]
  10. PROTONIX (PANTOPRAZOLE SODIUM SESQUIHYDRATE) [Concomitant]
  11. OMEPRAZOLE (OMEPRAZOLE) [Concomitant]
  12. ALLOPURINOL (ALLOPURINOL) [Concomitant]
  13. PRAVASTATIN (PRAVASTATIN) [Concomitant]
  14. LISINOPRIL (LISINOPRIL) [Concomitant]
  15. AMLODIPINE (AMLODIPINE) [Concomitant]
  16. FUROSEMIDE (FUROSEMIDE) [Concomitant]
  17. POTASSIUM (POTASSIUM) [Concomitant]
  18. CLOBETASOL (CLOBETASOL) [Concomitant]
  19. PROVENTIL HFA /00139501/ (SALBUTAMOL) [Concomitant]
  20. SPIRIVA (TIOTROPIUM BROMIDE) [Concomitant]
  21. ADVAIR (FLUTICASONE PROPIONATE, SALMETEROL XINAFOATE) [Concomitant]
  22. ASMANEX (MOMETASONE FUROATE) [Concomitant]
  23. ESTRACE (ESTRADIOL) [Concomitant]
  24. PREMARIN VAGINAL (ESTROGENS CONJUGATED) [Concomitant]
  25. FOLIC ACID (FOLIC ACID) [Concomitant]
  26. FERROUS SULFATE (FERROUS SULFATE) [Concomitant]
  27. TUMS /00193601/ (CALCIUM CARBONATE, MAGNESIUM CARBONATE, MAGNESIUM TRISILICATE) [Concomitant]
  28. VITAMIN D2 (ERGOCALCIFEROL) [Concomitant]

REACTIONS (7)
  - Femur fracture [None]
  - Fall [None]
  - Fracture displacement [None]
  - Bone disorder [None]
  - Low turnover osteopathy [None]
  - Stress fracture [None]
  - Hyperparathyroidism [None]
